FAERS Safety Report 6539572-X (Version None)
Quarter: 2010Q1

REPORT INFORMATION
  Report Type: 
  Country: None (occurrence: None)
  Receive Date: 20100115
  Receipt Date: 20100113
  Transmission Date: 20100710
  Serious: Yes (Other)
  Sender: FDA-Public Use
  Company Number: D0066011A

PATIENT
  Age: 50 Year

DRUGS (2)
  1. REQUIP [Suspect]
     Dosage: 16MG PER DAY
     Route: 048
  2. REQUIP [Concomitant]
     Dosage: 8MG PER DAY
     Route: 048

REACTIONS (1)
  - PARKINSONISM [None]
